FAERS Safety Report 22264527 (Version 7)
Quarter: 2024Q1

REPORT INFORMATION
  Report Type: Spontaneous
  Country: US (occurrence: US)
  Receive Date: 20230428
  Receipt Date: 20240209
  Transmission Date: 20240410
  Serious: No
  Sender: FDA-Public Use
  Company Number: US-THERATECHNOLOGIES INC.-2023-THE-TES-000133

PATIENT

DRUGS (4)
  1. EGRIFTA SV [Suspect]
     Active Substance: TESAMORELIN ACETATE
     Indication: Lipodystrophy acquired
     Dosage: 1.4 MG, QD
     Route: 058
     Dates: start: 20230301, end: 202304
  2. EGRIFTA SV [Suspect]
     Active Substance: TESAMORELIN ACETATE
     Dosage: 1.4 MG, QD
     Route: 058
     Dates: start: 202305, end: 202305
  3. EGRIFTA SV [Suspect]
     Active Substance: TESAMORELIN ACETATE
     Dosage: 1.4 MG, QD
     Route: 058
  4. EGRIFTA SV [Suspect]
     Active Substance: TESAMORELIN ACETATE
     Dosage: UNK UNK, QD
     Route: 065
     Dates: start: 202303

REACTIONS (11)
  - Weight increased [Unknown]
  - Limb discomfort [Unknown]
  - Swelling face [Unknown]
  - Muscle tightness [Unknown]
  - Product dose omission issue [Recovered/Resolved]
  - Fluid retention [Recovered/Resolved]
  - Peripheral swelling [Recovering/Resolving]
  - Peripheral swelling [Recovering/Resolving]
  - Pain in extremity [Not Recovered/Not Resolved]
  - Pain in extremity [Not Recovered/Not Resolved]
  - Fluid retention [Recovering/Resolving]

NARRATIVE: CASE EVENT DATE: 20230301
